FAERS Safety Report 9912013 (Version 1)
Quarter: 2014Q1

REPORT INFORMATION
  Report Type: Spontaneous
  Country: US (occurrence: US)
  Receive Date: 20140219
  Receipt Date: 20140219
  Transmission Date: 20141002
  Serious: No
  Sender: FDA-Public Use
  Company Number: US-MYLANLABS-PF-2013279546

PATIENT
  Sex: Male

DRUGS (2)
  1. EPIPEN [Suspect]
     Dosage: UNK
  2. EPIPEN [Suspect]

REACTIONS (2)
  - Accidental exposure to product [Recovered/Resolved]
  - Product quality issue [Recovered/Resolved]
